FAERS Safety Report 23063383 (Version 1)
Quarter: 2023Q4

REPORT INFORMATION
  Report Type: Spontaneous
  Country: US (occurrence: US)
  Receive Date: 20231013
  Receipt Date: 20231013
  Transmission Date: 20240110
  Serious: Yes (Hospitalization, Other)
  Sender: FDA-Public Use
  Company Number: US-MYLANLABS-2023M1106642

PATIENT
  Age: 50 Year
  Sex: Male

DRUGS (5)
  1. CABERGOLINE [Suspect]
     Active Substance: CABERGOLINE
     Indication: Prolactin-producing pituitary tumour
     Dosage: 0.5 MILLIGRAM, QD (DISCONTINUED FOR 6 MONTHS DUE TO A MISCOMMUNICATION (MEDICATION ERROR))
     Route: 065
  2. CABERGOLINE [Suspect]
     Active Substance: CABERGOLINE
     Dosage: UNK ( RE-STARTED AND CONTINUED THROUGHOUT HIS TREATMENT COURSE)
     Route: 065
  3. EVEROLIMUS [Suspect]
     Active Substance: EVEROLIMUS
     Indication: Prolactin-producing pituitary tumour
     Dosage: 10 MILLIGRAM, QD
     Route: 065
  4. CAPECITABINE [Concomitant]
     Active Substance: CAPECITABINE
     Indication: Prolactin-producing pituitary tumour
     Dosage: UNK
     Route: 065
  5. TEMOZOLOMIDE [Concomitant]
     Active Substance: TEMOZOLOMIDE
     Indication: Prolactin-producing pituitary tumour
     Dosage: UNK
     Route: 065

REACTIONS (4)
  - Drug resistance [Unknown]
  - Medication error [Unknown]
  - Off label use [Unknown]
  - Pneumonitis [Unknown]
